FAERS Safety Report 9208177 (Version 2)
Quarter: 2014Q2

REPORT INFORMATION
  Report Type: Spontaneous
  Country: US (occurrence: US)
  Receive Date: 20130403
  Receipt Date: 20140411
  Transmission Date: 20141212
  Serious: Yes (Hospitalization)
  Sender: FDA-Public Use
  Company Number: US-B.I. PHARMACEUTICALS,INC./RIDGEFIELD-2013-BI-08994BP

PATIENT
  Sex: Male
  Weight: 85.73 kg

DRUGS (9)
  1. PRADAXA [Suspect]
     Indication: ATRIAL FIBRILLATION
     Route: 065
     Dates: start: 20110509, end: 201110
  2. MULTI-VITAMIN [Concomitant]
     Route: 065
  3. TYLENOL [Concomitant]
     Route: 065
  4. IBUTEROL [Concomitant]
     Route: 065
  5. SOTALOL [Concomitant]
     Route: 065
  6. CARVEDELOL [Concomitant]
     Route: 065
     Dates: start: 2009, end: 2011
  7. ENALAPRIL [Concomitant]
     Route: 065
     Dates: start: 2009, end: 2011
  8. MIRTAZAPINE [Concomitant]
     Route: 065
     Dates: start: 2009, end: 2011
  9. SIMVASTATIN [Concomitant]
     Route: 065
     Dates: start: 2009, end: 2011

REACTIONS (2)
  - Gastrointestinal haemorrhage [Unknown]
  - Respiratory failure [Unknown]
